FAERS Safety Report 24194793 (Version 1)
Quarter: 2024Q3

REPORT INFORMATION
  Report Type: Spontaneous
  Country: US (occurrence: US)
  Receive Date: 20240809
  Receipt Date: 20240809
  Transmission Date: 20241017
  Serious: Yes (Other)
  Sender: PFIZER
  Company Number: US-PFIZER INC-202400232389

PATIENT
  Age: 56 Year
  Sex: Female
  Weight: 99.79 kg

DRUGS (2)
  1. XELJANZ [Suspect]
     Active Substance: TOFACITINIB CITRATE
     Indication: Rheumatoid arthritis
     Dosage: 5 MG, 2X/DAY (5MG IN THE MORNING/5MG AT NIGHT)
     Dates: start: 2012, end: 202404
  2. LOSARTAN [Concomitant]
     Active Substance: LOSARTAN\LOSARTAN POTASSIUM
     Indication: Hypertension
     Dosage: 1X/DAY (50-12.5 MILLIGRAMS)

REACTIONS (1)
  - Foot operation [Unknown]
